FAERS Safety Report 5730204-7 (Version None)
Quarter: 2008Q2

REPORT INFORMATION
  Report Type: 
  Country: None (occurrence: None)
  Receive Date: 20080507
  Receipt Date: 20080423
  Transmission Date: 20081010
  Serious: Yes (Hospitalization)
  Sender: FDA-Public Use
  Company Number: GB-AMGEN-UK274301

PATIENT
  Sex: Female
  Weight: 60 kg

DRUGS (16)
  1. NEULASTA [Suspect]
     Indication: CHEMOTHERAPY
     Route: 058
     Dates: start: 20080101, end: 20080401
  2. CHLORAMBUCIL [Concomitant]
     Route: 048
     Dates: end: 20080404
  3. VINBLASTINE SULFATE [Concomitant]
     Route: 042
     Dates: end: 20080404
  4. PROCARBAZINE [Concomitant]
     Route: 048
     Dates: end: 20080404
  5. PREDNISOLONE [Concomitant]
     Route: 048
     Dates: end: 20080404
  6. ONDANSETRON [Concomitant]
     Route: 048
     Dates: end: 20080404
  7. CO-TRIMOXAZOLE [Concomitant]
     Route: 048
     Dates: end: 20080204
  8. LANSOPRAZOLE [Concomitant]
     Route: 048
     Dates: end: 20080404
  9. METOCLOPROMIDE [Concomitant]
     Route: 048
     Dates: end: 20080404
  10. DOMPERIDONE [Concomitant]
     Route: 054
     Dates: end: 20080404
  11. NULYTELY [Concomitant]
     Route: 048
     Dates: end: 20080404
  12. CYCLIZINE [Concomitant]
     Route: 048
     Dates: end: 20080404
  13. DIFFLAM [Concomitant]
     Route: 048
     Dates: end: 20080404
  14. ENOXAPARIN SODIUM [Concomitant]
     Route: 058
  15. WARFARIN SODIUM [Concomitant]
     Route: 048
  16. ALLOPURINOL [Concomitant]
     Dates: end: 20080227

REACTIONS (3)
  - INJECTION SITE ERYTHEMA [None]
  - LICHENIFICATION [None]
  - RASH GENERALISED [None]
